FAERS Safety Report 9133905 (Version 1)
Quarter: 2013Q1

REPORT INFORMATION
  Report Type: Spontaneous
  Country: US (occurrence: US)
  Receive Date: 20130127
  Receipt Date: 20130127
  Transmission Date: 20140127
  Serious: No
  Sender: FDA-Public Use
  Company Number: US-009507513-1301USA009819

PATIENT
  Sex: Male

DRUGS (5)
  1. VICTRELIS [Suspect]
     Dosage: 800 MG, TID
     Route: 048
  2. PEGASYS [Suspect]
     Dosage: 180 MCG/M
  3. RIBASPHERE [Suspect]
  4. PRILOSEC [Concomitant]
  5. NEUPOGEN [Concomitant]

REACTIONS (9)
  - White blood cell count decreased [Unknown]
  - Influenza like illness [Unknown]
  - Weight increased [Unknown]
  - Dyspnoea [Unknown]
  - Palpitations [Unknown]
  - Fatigue [Unknown]
  - Dizziness [Unknown]
  - Alopecia [Unknown]
  - Rash [Unknown]
